FAERS Safety Report 8366053-3 (Version None)
Quarter: 2012Q2

REPORT INFORMATION
  Report Type: 
  Country: None (occurrence: None)
  Receive Date: 20120516
  Receipt Date: 20120516
  Transmission Date: 20120825
  Serious: No
  Sender: FDA-Public Use
  Company Number: None

PATIENT
  Sex: Female
  Weight: 92.5338 kg

DRUGS (1)
  1. MEGESTROL ACETATE [Suspect]
     Indication: NEOPLASM MALIGNANT
     Dosage: 4-TABS A DAY 2 TIMES DAILY
     Dates: start: 20120312, end: 20120401

REACTIONS (4)
  - DYSPNOEA [None]
  - DEEP VEIN THROMBOSIS [None]
  - ANGIOPATHY [None]
  - PHLEBITIS [None]
